FAERS Safety Report 24411792 (Version 2)
Quarter: 2024Q4

REPORT INFORMATION
  Report Type: Spontaneous
  Country: JP (occurrence: JP)
  Receive Date: 20241008
  Receipt Date: 20241020
  Transmission Date: 20250115
  Serious: Yes (Death, Other)
  Sender: ARDELYX
  Company Number: JP-ARDELYX-2024ARDX007464

PATIENT
  Age: 76 Year
  Sex: Male

DRUGS (2)
  1. TENAPANOR HYDROCHLORIDE [Suspect]
     Active Substance: TENAPANOR HYDROCHLORIDE
     Indication: Hyperphosphataemia
     Dosage: 5 MILLIGRAM, DOSE REDUCTION
     Route: 048
  2. TENAPANOR HYDROCHLORIDE [Suspect]
     Active Substance: TENAPANOR HYDROCHLORIDE
     Dosage: UNK
     Route: 048

REACTIONS (1)
  - Aneurysm ruptured [Fatal]
